FAERS Safety Report 5293710-8 (Version None)
Quarter: 2007Q2

REPORT INFORMATION
  Report Type: 
  Country: None (occurrence: None)
  Receive Date: 20070405
  Receipt Date: 20070323
  Transmission Date: 20071010
  Serious: Yes (Hospitalization)
  Sender: FDA-Public Use
  Company Number: US019678

PATIENT
  Age: 48 Year
  Sex: Female
  Weight: 85 kg

DRUGS (2)
  1. MODAFINIL [Suspect]
     Dates: start: 20060101, end: 20070101
  2. REBIF [Suspect]
     Indication: MULTIPLE SCLEROSIS
     Dosage: THREE TIMES PER WEEK
     Dates: start: 20050101, end: 20070101

REACTIONS (1)
  - LIVEDO RETICULARIS [None]
